FAERS Safety Report 4930789-4 (Version None)
Quarter: 2006Q1

REPORT INFORMATION
  Report Type: 
  Country: None (occurrence: None)
  Receive Date: 20060227
  Receipt Date: 20060215
  Transmission Date: 20060701
  Serious: Yes (Hospitalization)
  Sender: FDA-Public Use
  Company Number: 2006RR-01627

PATIENT
  Age: 74 Year

DRUGS (12)
  1. RAMIPRIL [Suspect]
     Indication: MYOCARDIAL INFARCTION
     Dosage: 10 MG, OD, QD, ORAL
     Route: 048
     Dates: end: 20060123
  2. TRIMETHOPRIM [Suspect]
     Indication: URINARY TRACT INFECTION
     Dosage: 200 MG, ON, ORAL
     Route: 048
     Dates: end: 20060123
  3. NITROFURANTOIN [Suspect]
     Indication: URINARY TRACT INFECTION
     Dosage: 100 MG, BID, ORAL
     Route: 048
     Dates: end: 20060123
  4. AMLODIPINE [Concomitant]
  5. CLOPIDOGREL [Concomitant]
  6. ATENOLOL TABLETS BP 100MG (ATENOLOL) TABLET [Concomitant]
  7. HUMULIN M3 [Concomitant]
  8. SIMVASTATIN TABLET 40MG (SIMVASTATIN) TABLET [Concomitant]
  9. FRUSEMIDE TABLET 40MG BP (FUROSEMIDE) TABLET [Concomitant]
  10. DIPYRIDAMOLE [Concomitant]
  11. METFORMIN TABLETS 500MG (METFORMIN HYDROCHLORIDE) TABLET [Concomitant]
  12. ZOPICLONE (ZOPICLONE) TABLET [Concomitant]

REACTIONS (2)
  - DIARRHOEA HAEMORRHAGIC [None]
  - HYPERKALAEMIA [None]
